FAERS Safety Report 6976596-2 (Version None)
Quarter: 2010Q3

REPORT INFORMATION
  Report Type: 
  Country: None (occurrence: None)
  Receive Date: 20100910
  Receipt Date: 20100903
  Transmission Date: 20110219
  Serious: Yes (Other)
  Sender: FDA-Public Use
  Company Number: US-PFIZER INC-2010045112

PATIENT
  Sex: Female
  Weight: 90.703 kg

DRUGS (5)
  1. NICOTROL [Suspect]
     Indication: SMOKING CESSATION THERAPY
     Dosage: UNK
     Route: 045
     Dates: start: 20100301, end: 20100401
  2. NICOTROL [Suspect]
     Dosage: UNK
     Dates: start: 20100101
  3. ALBUTEROL [Concomitant]
     Indication: DYSPNOEA
     Dosage: 2 MG  TABLETS, 2X/DAY
  4. LEVOTHYROXINE [Concomitant]
     Indication: THYROID DISORDER
     Dosage: 125 UG, 1X/DAY
     Route: 048
  5. NORVASC [Concomitant]
     Indication: HYPERTENSION
     Dosage: 10 MG, 1X/DAY
     Route: 048

REACTIONS (24)
  - BURNING SENSATION MUCOSAL [None]
  - COUGH [None]
  - DEPRESSED MOOD [None]
  - DRUG ADMINISTRATION ERROR [None]
  - DRY MOUTH [None]
  - DYSGEUSIA [None]
  - FEELING ABNORMAL [None]
  - FEELING HOT [None]
  - HAEMORRHAGE [None]
  - HEADACHE [None]
  - HYSTERECTOMY [None]
  - IMPAIRED HEALING [None]
  - LUNG DISORDER [None]
  - MYOMECTOMY [None]
  - NASAL DISORDER [None]
  - NAUSEA [None]
  - NIGHT SWEATS [None]
  - SALIVARY DUCT OBSTRUCTION [None]
  - SALIVARY GLAND DISORDER [None]
  - SINUS DISORDER [None]
  - THINKING ABNORMAL [None]
  - THROAT IRRITATION [None]
  - TRAUMATIC LUNG INJURY [None]
  - UMBILICAL HERNIA [None]
